FAERS Safety Report 16429992 (Version 6)
Quarter: 2020Q2

REPORT INFORMATION
  Report Type: Spontaneous
  Country: US (occurrence: US)
  Receive Date: 20190614
  Receipt Date: 20200617
  Transmission Date: 20200713
  Serious: Yes (Hospitalization, Other)
  Sender: FDA-Public Use
  Company Number: US-PFIZER INC-2019252078

PATIENT
  Age: 71 Year
  Sex: Female
  Weight: 61.69 kg

DRUGS (6)
  1. XELJANZ XR [Suspect]
     Active Substance: TOFACITINIB CITRATE
     Indication: RHEUMATOID ARTHRITIS
     Dosage: 11 MG, 1X/DAY
     Dates: start: 20181030
  2. MOBIC [Concomitant]
     Active Substance: MELOXICAM
     Dosage: UNK
     Dates: end: 20190807
  3. XELJANZ XR [Suspect]
     Active Substance: TOFACITINIB CITRATE
     Dosage: 11 MG, DAILY
     Route: 048
     Dates: end: 2020
  4. CELEBREX [Concomitant]
     Active Substance: CELECOXIB
     Dosage: UNK
     Dates: end: 20190807
  5. METHOTREXATE. [Concomitant]
     Active Substance: METHOTREXATE
     Dosage: UNK
     Dates: end: 20190807
  6. ORENCIA [Concomitant]
     Active Substance: ABATACEPT
     Dosage: UNK
     Dates: end: 20190807

REACTIONS (8)
  - Lower limb fracture [Not Recovered/Not Resolved]
  - Fall [Not Recovered/Not Resolved]
  - Upper limb fracture [Not Recovered/Not Resolved]
  - Hypoacusis [Unknown]
  - Hip fracture [Unknown]
  - Pain in extremity [Not Recovered/Not Resolved]
  - Impaired healing [Not Recovered/Not Resolved]
  - Fall [Unknown]

NARRATIVE: CASE EVENT DATE: 20181224
